FAERS Safety Report 8425064 (Version 8)
Quarter: 2012Q4

REPORT INFORMATION
  Report Type: 
  Country: US (occurrence: US)
  Receive Date: 20120224
  Receipt Date: 20121220
  Transmission Date: 20130627
  Serious: Yes (Hospitalization)
  Sender: FDA-Public Use
  Company Number: US-GLAXOSMITHKLINE-A0966792A

PATIENT
  Age: 39 Year
  Sex: Female
  Weight: 55 kg

DRUGS (5)
  1. FLOLAN [Suspect]
     Indication: CONNECTIVE TISSUE DISORDER
     Dosage: 21NGKM Continuous
     Route: 042
     Dates: start: 20100827
  2. COMPAZINE [Concomitant]
  3. REMERON [Concomitant]
  4. ZOFRAN [Concomitant]
  5. BACTRIM [Concomitant]

REACTIONS (10)
  - Basedow^s disease [Recovered/Resolved]
  - Syncope [Recovered/Resolved]
  - Weight decreased [Recovered/Resolved]
  - Nuclear magnetic resonance imaging [Recovered/Resolved]
  - Vomiting [Unknown]
  - Blood pressure decreased [Recovered/Resolved]
  - Dehydration [Unknown]
  - Asthenia [Unknown]
  - Diarrhoea [Unknown]
  - Adverse event [Unknown]
